FAERS Safety Report 23333087 (Version 1)
Quarter: 2023Q4

REPORT INFORMATION
  Report Type: Spontaneous
  Country: US (occurrence: US)
  Receive Date: 20231222
  Receipt Date: 20231222
  Transmission Date: 20240110
  Serious: No
  Sender: FDA-Public Use
  Company Number: US-PFIZER INC-202300348856

PATIENT
  Age: 77 Year
  Sex: Female

DRUGS (1)
  1. INLYTA [Suspect]
     Active Substance: AXITINIB
     Dosage: 5 MG, 1X/DAY (TAKE 1 TABLET DAILY)
     Route: 048

REACTIONS (3)
  - Diarrhoea [Recovered/Resolved]
  - Off label use [Unknown]
  - Neoplasm progression [Unknown]
